FAERS Safety Report 24622649 (Version 2)
Quarter: 2024Q4

REPORT INFORMATION
  Report Type: Report from Study
  Country: CN (occurrence: CN)
  Receive Date: 20241115
  Receipt Date: 20241123
  Transmission Date: 20250115
  Serious: Yes (Hospitalization)
  Sender: NOVARTIS
  Company Number: CN-002147023-NVSC2024CN219798

PATIENT

DRUGS (1)
  1. LEQVIO [Suspect]
     Active Substance: INCLISIRAN SODIUM
     Indication: Hyperlipidaemia
     Dosage: 1 DOSAGE FORM
     Route: 058
     Dates: start: 20241015

REACTIONS (6)
  - Blood pressure increased [Unknown]
  - Vertigo [Unknown]
  - Mobility decreased [Unknown]
  - Blood creatine phosphokinase increased [Unknown]
  - Apolipoprotein B decreased [Unknown]
  - Blood cholesterol decreased [Unknown]

NARRATIVE: CASE EVENT DATE: 20241024
